FAERS Safety Report 5996920-7 (Version None)
Quarter: 2008Q4

REPORT INFORMATION
  Report Type: 
  Country: None (occurrence: None)
  Receive Date: 20081208
  Receipt Date: 20081125
  Transmission Date: 20090506
  Serious: No
  Sender: FDA-Public Use
  Company Number: B0548893B

PATIENT
  Sex: Male
  Weight: 1.8144 kg

DRUGS (7)
  1. BUDESONIDE [Suspect]
     Indication: ASTHMA
     Dosage: PER DAY/ TRANSPLACENTARY
     Route: 064
  2. ALBUTEROL SULFATE [Suspect]
     Indication: ASTHMA
     Dosage: AS REQUIRED/ TRANSPLACENTA
     Route: 064
  3. BETAMETHASONE [Suspect]
     Indication: MATERNAL THERAPY TO ENHANCE FOETAL LUNG MATURITY
     Dosage: TRANSPLACENTARY
     Route: 064
  4. BUPIVACAINE [Suspect]
     Indication: ANAESTHESIA
     Dosage: 10 MG/ SINGLE DOSE/ TRANSPLACENTA
     Route: 064
  5. MORPHINE [Suspect]
     Indication: ANAESTHESIA
     Dosage: .2 MG/ SINGLE DOSE/ TRANSPLACENTA
     Route: 064
  6. SODIUM CITRATE [Suspect]
     Dosage: 30 ML/ SINGLE DOSE/ TRANSPLACENTA
     Route: 064
  7. EPHEDRINE (FORMUALTION UNKNOWN) (EPHEDRINE) [Suspect]
     Dosage: 10 MG/ TWICE PER DAY/ TRANSPLACEN
     Route: 064

REACTIONS (9)
  - APGAR SCORE LOW [None]
  - CAESAREAN SECTION [None]
  - CARDIO-RESPIRATORY ARREST [None]
  - FOETAL HEART RATE DECELERATION [None]
  - GENERALISED OEDEMA [None]
  - HYDROPS FOETALIS [None]
  - MATERNAL DRUGS AFFECTING FOETUS [None]
  - PLEURAL EFFUSION [None]
  - RESUSCITATION [None]
